FAERS Safety Report 19259782 (Version 12)
Quarter: 2025Q3

REPORT INFORMATION
  Report Type: Spontaneous
  Country: US (occurrence: US)
  Receive Date: 20210514
  Receipt Date: 20250930
  Transmission Date: 20251020
  Serious: Yes (Other)
  Sender: PFIZER
  Company Number: US-PFIZER INC-2021494193

PATIENT
  Age: 88 Year
  Sex: Female

DRUGS (5)
  1. IBRANCE [Suspect]
     Active Substance: PALBOCICLIB
     Indication: Breast cancer female
     Dates: start: 20210323
  2. IBRANCE [Suspect]
     Active Substance: PALBOCICLIB
     Route: 048
     Dates: start: 20231009
  3. IBRANCE [Suspect]
     Active Substance: PALBOCICLIB
     Route: 048
  4. IBRANCE [Suspect]
     Active Substance: PALBOCICLIB
     Route: 048
  5. FULVESTRANT [Concomitant]
     Active Substance: FULVESTRANT

REACTIONS (7)
  - Renal failure [Unknown]
  - Pancytopenia [Unknown]
  - Hypoacusis [Unknown]
  - Psychiatric symptom [Unknown]
  - Fatigue [Not Recovered/Not Resolved]
  - Pleural effusion [Unknown]
  - Throat clearing [Unknown]
